FAERS Safety Report 9182258 (Version 1)
Quarter: 2012Q4

REPORT INFORMATION
  Report Type: 
  Country: US (occurrence: US)
  Receive Date: 20121030
  Receipt Date: 20121030
  Transmission Date: 20130627
  Serious: No
  Sender: FDA-Public Use
  Company Number: US-GLAXOSMITHKLINE-A0983968A

PATIENT
  Age: 72 Year
  Sex: Male

DRUGS (8)
  1. SEREVENT [Suspect]
     Indication: PRODUCT USED FOR UNKNOWN INDICATION
     Dosage: 1PUFF Per day
     Route: 055
     Dates: start: 2010
  2. FLOVENT [Concomitant]
  3. POTASSIUM [Concomitant]
  4. INSULIN [Concomitant]
  5. UNKNOWN MEDICATION [Concomitant]
     Indication: GOUT
  6. ANTI-CHOLESTEROL MEDICATION [Concomitant]
  7. MEDICATION FOR FLUID RETENTION [Concomitant]
  8. DIGOXIN [Concomitant]

REACTIONS (2)
  - Drug effect decreased [Recovering/Resolving]
  - Drug ineffective [Unknown]
